FAERS Safety Report 9201699 (Version 1)
Quarter: 2013Q2

REPORT INFORMATION
  Report Type: Spontaneous
  Country: US (occurrence: US)
  Receive Date: 20130401
  Receipt Date: 20130401
  Transmission Date: 20140414
  Serious: Yes (Death, Other)
  Sender: FDA-Public Use
  Company Number: US-CELGENEUS-163-21880-13034365

PATIENT
  Sex: 0

DRUGS (4)
  1. REVLIMID [Suspect]
     Indication: ACUTE LYMPHOCYTIC LEUKAEMIA
     Dosage: 50 MILLIGRAM
     Route: 048
  2. VINCRISTINE [Concomitant]
     Indication: PRODUCT USED FOR UNKNOWN INDICATION
     Route: 065
  3. DEXAMETHASONE [Concomitant]
     Indication: PRODUCT USED FOR UNKNOWN INDICATION
     Route: 065
  4. RITUXIMAB [Concomitant]
     Indication: PRODUCT USED FOR UNKNOWN INDICATION
     Route: 065

REACTIONS (5)
  - Acute lymphocytic leukaemia [Fatal]
  - Febrile neutropenia [Unknown]
  - Rash [Unknown]
  - Pneumonia [Unknown]
  - Pruritus [Unknown]
